FAERS Safety Report 5123133-3 (Version None)
Quarter: 2006Q3

REPORT INFORMATION
  Report Type: 
  Country: None (occurrence: None)
  Receive Date: 20060818
  Receipt Date: 20060818
  Transmission Date: 20061208
  Serious: Yes (Hospitalization, Other)
  Sender: FDA-Public Use
  Company Number: 2005024253

PATIENT
  Age: 78 Year
  Sex: Female
  Weight: 97.5234 kg

DRUGS (16)
  1. CELEBREX [Suspect]
     Indication: ARTHRITIS
     Dosage: 200 MG (200 MG, 1 IN 1 D)
     Dates: start: 20010410
  2. ASPIRIN [Concomitant]
  3. CARAFATE [Concomitant]
  4. DETROL LA (TOLERODINE L-TARTRATE) [Concomitant]
  5. FOLIC AICD (FOLIC ACID) [Concomitant]
  6. FUROSEMIDE [Concomitant]
  7. GLUCOPHAGE [Concomitant]
  8. LEXAPRO [Concomitant]
  9. LISINOPRIL [Concomitant]
  10. METCLOPRAMIDE HYDROCHLORIDE (METCLOPRAMIDE HYDROCHLORIDE) [Concomitant]
  11. NEXIUM [Concomitant]
  12. VIATAMIN B (VITAMIN B) [Concomitant]
  13. CARDIZEM [Concomitant]
  14. MULTIVTIAMINS (MULTIVITAMINS) [Concomitant]
  15. TOPROL-XL [Concomitant]
  16. RANITIDINE [Concomitant]

REACTIONS (5)
  - ANGIOPATHY [None]
  - CARDIAC DISORDER [None]
  - CORONARY ARTERY OCCLUSION [None]
  - MYOCARDIAL INFARCTION [None]
  - THROMBOSIS [None]
